FAERS Safety Report 12529822 (Version 1)
Quarter: 2016Q3

REPORT INFORMATION
  Report Type: Spontaneous
  Country: US (occurrence: None)
  Receive Date: 20160705
  Receipt Date: 20160705
  Transmission Date: 20161109
  Serious: No
  Sender: FDA-Public Use
  Company Number: None

PATIENT
  Age: 56 Year
  Sex: Male

DRUGS (1)
  1. SPRYCEL [Suspect]
     Active Substance: DASATINIB
     Indication: DRUG THERAPY
     Route: 048
     Dates: start: 20110211

REACTIONS (3)
  - Respiratory disorder [None]
  - Diarrhoea [None]
  - Fatigue [None]
